FAERS Safety Report 10493116 (Version 2)
Quarter: 2014Q4

REPORT INFORMATION
  Report Type: Spontaneous
  Country: US (occurrence: US)
  Receive Date: 20141002
  Receipt Date: 20141124
  Transmission Date: 20150528
  Serious: Yes (Hospitalization, Other)
  Sender: FDA-Public Use
  Company Number: US-GLAXOSMITHKLINE-A1079219A

PATIENT
  Age: 44 Year
  Sex: Female

DRUGS (28)
  1. ADVAIR HFA [Suspect]
     Active Substance: FLUTICASONE PROPIONATE\SALMETEROL XINAFOATE
     Indication: ASTHMA
     Dosage: 250/50 MCG, PRN
     Route: 055
     Dates: start: 2004
  2. PROTONIX [Concomitant]
     Active Substance: PANTOPRAZOLE SODIUM
  3. MIRALAX [Concomitant]
     Active Substance: POLYETHYLENE GLYCOL 3350
  4. ZOFRAN [Concomitant]
     Active Substance: ONDANSETRON HYDROCHLORIDE
  5. ADVAIR HFA [Suspect]
     Active Substance: FLUTICASONE PROPIONATE\SALMETEROL XINAFOATE
     Dosage: 250/50 MCG, BID
  6. B-12 INJECTIONS [Concomitant]
  7. CETIRIZINE [Concomitant]
     Active Substance: CETIRIZINE HYDROCHLORIDE
  8. CLONAZEPAM. [Concomitant]
     Active Substance: CLONAZEPAM
  9. FLEXERIL [Concomitant]
     Active Substance: CYCLOBENZAPRINE HYDROCHLORIDE
  10. LORTAB [Concomitant]
     Active Substance: ACETAMINOPHEN\HYDROCODONE BITARTRATE
  11. PHENYLEPHRINE [Concomitant]
     Active Substance: PHENYLEPHRINE\PHENYLEPHRINE HYDROCHLORIDE
  12. FOLIC ACID. [Concomitant]
     Active Substance: FOLIC ACID
  13. ESTRADIOL. [Concomitant]
     Active Substance: ESTRADIOL
  14. SINGULAIR [Concomitant]
     Active Substance: MONTELUKAST SODIUM
  15. CARVEDILOL. [Concomitant]
     Active Substance: CARVEDILOL
  16. LISINOPRIL. [Concomitant]
     Active Substance: LISINOPRIL
  17. ADVAIR HFA [Suspect]
     Active Substance: FLUTICASONE PROPIONATE\SALMETEROL XINAFOATE
     Dosage: 500/50 MCG, BID
  18. PREDNISONE. [Concomitant]
     Active Substance: PREDNISONE
  19. GUAIFENESIN. [Concomitant]
     Active Substance: GUAIFENESIN
  20. SULFASALAZINE. [Concomitant]
     Active Substance: SULFASALAZINE
  21. FLUTICASONE NASAL SPRAY [Concomitant]
     Active Substance: FLUTICASONE\FLUTICASONE PROPIONATE
  22. GABAPENTIN. [Concomitant]
     Active Substance: GABAPENTIN
  23. FLECAINIDE [Concomitant]
     Active Substance: FLECAINIDE
  24. DILTIAZEM [Concomitant]
     Active Substance: DILTIAZEM
  25. VENTOLIN [Concomitant]
     Active Substance: ALBUTEROL SULFATE
  26. ALBUTEROL. [Concomitant]
     Active Substance: ALBUTEROL
  27. EFFEXOR XR [Concomitant]
     Active Substance: VENLAFAXINE HYDROCHLORIDE
  28. LAMICTAL [Concomitant]
     Active Substance: LAMOTRIGINE

REACTIONS (4)
  - Asthma [Recovering/Resolving]
  - Drug ineffective [Recovering/Resolving]
  - Off label use [Recovering/Resolving]
  - Hospitalisation [Unknown]

NARRATIVE: CASE EVENT DATE: 201402
